FAERS Safety Report 5709506-6 (Version None)
Quarter: 2008Q2

REPORT INFORMATION
  Report Type: 
  Country: None (occurrence: None)
  Receive Date: 20080417
  Receipt Date: 20080417
  Transmission Date: 20081010
  Serious: Yes (Other)
  Sender: FDA-Public Use
  Company Number: None

PATIENT
  Age: 65 Year
  Sex: Male
  Weight: 88.4514 kg

DRUGS (1)
  1. CEFUROXIME [Suspect]
     Indication: TONSILLITIS
     Dosage: 500 MG 2X DAY

REACTIONS (2)
  - PSEUDOMEMBRANOUS COLITIS [None]
  - THERAPEUTIC RESPONSE DECREASED [None]
